FAERS Safety Report 10421093 (Version 2)
Quarter: 2014Q4

REPORT INFORMATION
  Report Type: Spontaneous
  Country: US (occurrence: None)
  Receive Date: 20140722
  Receipt Date: 20141121
  Transmission Date: 20150528
  Serious: No
  Sender: FDA-Public Use
  Company Number: 163-10004-14054613

PATIENT
  Age: 64 Year
  Sex: Female
  Weight: 65.77 kg

DRUGS (4)
  1. OTEZLA [Suspect]
     Active Substance: APREMILAST
     Indication: PSORIATIC ARTHROPATHY
     Route: 048
     Dates: start: 20140516, end: 20140717
  2. SULFASALAZINE. [Concomitant]
     Active Substance: SULFASALAZINE
  3. CRESTOR [Concomitant]
     Active Substance: ROSUVASTATIN CALCIUM
  4. PREMARIN (ESTROGENS CONJUGATED) [Concomitant]

REACTIONS (5)
  - Nausea [None]
  - Gastrointestinal pain [None]
  - Pallor [None]
  - Headache [None]
  - Malaise [None]

NARRATIVE: CASE EVENT DATE: 20140516
